FAERS Safety Report 9510154 (Version 1)
Quarter: 2013Q3

REPORT INFORMATION
  Report Type: Spontaneous
  Country: BE (occurrence: BE)
  Receive Date: 20130909
  Receipt Date: 20130909
  Transmission Date: 20140515
  Serious: Yes (Other)
  Sender: FDA-Public Use
  Company Number: BE-B.I. PHARMACEUTICALS,INC./RIDGEFIELD-2013-BI-27253BL

PATIENT
  Age: 84 Year
  Sex: Male

DRUGS (1)
  1. PRADAXA [Suspect]
     Indication: ANTICOAGULATION DRUG LEVEL
     Dosage: 220 MG
     Route: 048
     Dates: start: 20130420

REACTIONS (2)
  - Decreased appetite [Not Recovered/Not Resolved]
  - Weight decreased [Not Recovered/Not Resolved]
